FAERS Safety Report 6692131-0 (Version None)
Quarter: 2010Q2

REPORT INFORMATION
  Report Type: 
  Country: None (occurrence: None)
  Receive Date: 20100422
  Receipt Date: 20090506
  Transmission Date: 20101027
  Serious: No
  Sender: FDA-Public Use
  Company Number: US-ASTRAZENECA-2009UW11540

PATIENT
  Sex: Female

DRUGS (3)
  1. TOPROL-XL [Suspect]
     Dosage: 25 MG
     Route: 048
  2. TOPROL-XL [Suspect]
     Dosage: 50 MG
     Route: 048
  3. TOPROL-XL [Suspect]
     Route: 048

REACTIONS (4)
  - ASTHMA [None]
  - DYSPNOEA [None]
  - JOINT SWELLING [None]
  - OEDEMA PERIPHERAL [None]
